FAERS Safety Report 6530982-3 (Version None)
Quarter: 2010Q1

REPORT INFORMATION
  Report Type: 
  Country: None (occurrence: None)
  Receive Date: 20100108
  Receipt Date: 20090807
  Transmission Date: 20100710
  Serious: No
  Sender: FDA-Public Use
  Company Number: A0801110A

PATIENT

DRUGS (2)
  1. LOVAZA [Suspect]
     Indication: DRUG USE FOR UNKNOWN INDICATION
     Route: 048
  2. OTHER MEDICATIONS [Concomitant]

REACTIONS (2)
  - BLOOD ALCOHOL INCREASED [None]
  - LEGAL PROBLEM [None]
